FAERS Safety Report 5259056-9 (Version None)
Quarter: 2007Q1

REPORT INFORMATION
  Report Type: 
  Country: None (occurrence: None)
  Receive Date: 20070305
  Receipt Date: 20070223
  Transmission Date: 20070707
  Serious: Yes (Hospitalization)
  Sender: FDA-Public Use
  Company Number: 163-21880-06120165

PATIENT
  Age: 51 Year
  Sex: Female

DRUGS (14)
  1. REVLIMID [Suspect]
     Indication: MULTIPLE MYELOMA
     Dosage: 25 MG, QD, ORAL
     Route: 048
     Dates: start: 20061001, end: 20061126
  2. FLUOXETINE [Concomitant]
  3. ZOMETA [Concomitant]
  4. OXYCONTIN [Concomitant]
  5. OXYCODONE HCL [Concomitant]
  6. PRILOSEC [Concomitant]
  7. AMITRIPTYLINE HCL [Concomitant]
  8. NABUMETONE [Concomitant]
  9. LACTOSE (LACTOSE) [Concomitant]
  10. STOOL SOFTENER (DOCUSATE SODIUM) [Concomitant]
  11. KLONOPIN [Concomitant]
  12. LORAZEPAM [Concomitant]
  13. MULTI-VITAMINS [Concomitant]
  14. DECADRON [Concomitant]

REACTIONS (3)
  - DYSPHAGIA [None]
  - STEVENS-JOHNSON SYNDROME [None]
  - SWELLING [None]
